FAERS Safety Report 19058762 (Version 1)
Quarter: 2021Q1

REPORT INFORMATION
  Report Type: Spontaneous
  Country: US (occurrence: US)
  Receive Date: 20210325
  Receipt Date: 20210325
  Transmission Date: 20210420
  Serious: Yes (Other)
  Sender: FDA-Public Use
  Company Number: US-TEVA-2021-US-1890883

PATIENT
  Sex: Female

DRUGS (3)
  1. CLONAZEPAM TEVA [Suspect]
     Active Substance: CLONAZEPAM
     Dosage: FORM OF ADMIN: ODT/TWO YEARS AGO SHE WAS SWITCHED TO TEVAS CLONAZEPAM 0.25 MG ODT
     Route: 065
  2. CLONAZEPAM TEVA [Suspect]
     Active Substance: CLONAZEPAM
     Dosage: NOW BREAKING THE 0.5 MG IN HALF TO EQUAL 0.25 MG
     Route: 065
  3. CLONAZEPAM TEVA [Suspect]
     Active Substance: CLONAZEPAM
     Route: 065

REACTIONS (18)
  - Withdrawal syndrome [Unknown]
  - Panic attack [Unknown]
  - Seizure [Unknown]
  - Muscle spasms [Unknown]
  - Dyskinesia [Unknown]
  - Fall [Unknown]
  - Anxiety [Unknown]
  - Feeling abnormal [Unknown]
  - Drug ineffective [Unknown]
  - Tremor [Unknown]
  - Somnolence [Unknown]
  - Headache [Unknown]
  - Dyspnoea [Unknown]
  - Conversion disorder [Unknown]
  - Nervousness [Unknown]
  - Obsessive thoughts [Unknown]
  - Balance disorder [Unknown]
  - Product availability issue [Unknown]
